FAERS Safety Report 8312604-4 (Version None)
Quarter: 2012Q2

REPORT INFORMATION
  Report Type: 
  Country: None (occurrence: None)
  Receive Date: 20120424
  Receipt Date: 20120410
  Transmission Date: 20120825
  Serious: Yes (Other)
  Sender: FDA-Public Use
  Company Number: FK201201104

PATIENT
  Age: 57 Year
  Sex: Male

DRUGS (6)
  1. DEXAMETHASONE [Suspect]
     Indication: T-CELL TYPE ACUTE LEUKAEMIA
     Dates: start: 20090101, end: 20090101
  2. ADRIAMYCIN PFS [Suspect]
     Indication: T-CELL TYPE ACUTE LEUKAEMIA
     Dates: start: 20090101, end: 20090101
  3. CYCLOPHOSPHAMIDE [Suspect]
     Indication: T-CELL TYPE ACUTE LEUKAEMIA
     Dates: start: 20090101, end: 20090101
  4. VINCRISTINE [Suspect]
     Indication: T-CELL TYPE ACUTE LEUKAEMIA
     Dates: start: 20090101, end: 20090101
  5. CLADRIBINE [Suspect]
     Indication: HAIRY CELL LEUKAEMIA
     Dates: start: 20050101, end: 20050101
  6. CLADRIBINE [Suspect]
     Indication: HAIRY CELL LEUKAEMIA
     Dates: start: 20090101, end: 20090101

REACTIONS (9)
  - DYSPNOEA [None]
  - LEUKAEMIA RECURRENT [None]
  - T-CELL TYPE ACUTE LEUKAEMIA [None]
  - TREATMENT RELATED SECONDARY MALIGNANCY [None]
  - MYELODYSPLASTIC SYNDROME [None]
  - PLEURAL EFFUSION [None]
  - ACQUIRED DIAPHRAGMATIC EVENTRATION [None]
  - STEM CELL TRANSPLANT [None]
  - HAIRY CELL LEUKAEMIA [None]
